FAERS Safety Report 8020468-1 (Version None)
Quarter: 2012Q1

REPORT INFORMATION
  Report Type: 
  Country: None (occurrence: None)
  Receive Date: 20120103
  Receipt Date: 20111228
  Transmission Date: 20120608
  Serious: Yes (Hospitalization)
  Sender: FDA-Public Use
  Company Number: JP-PFIZER INC-2011166757

PATIENT
  Age: 88 Year
  Sex: Female

DRUGS (4)
  1. AMLODIPINE BESYLATE [Suspect]
     Indication: HYPERTENSION
     Dosage: 5 MG, 1X/DAY
     Route: 048
     Dates: start: 20091021
  2. ONE-ALPHA [Suspect]
     Indication: OSTEOPOROSIS
     Dosage: 1 UG, 1X/DAY
     Route: 048
     Dates: start: 20071107
  3. ARICEPT [Suspect]
     Indication: DEMENTIA ALZHEIMER'S TYPE
     Dosage: 5 MG, DAILY
     Route: 048
     Dates: start: 20101020, end: 20110323
  4. EVISTA [Suspect]
     Indication: OSTEOPOROSIS
     Dosage: 60 MG, 1X/DAY
     Route: 048
     Dates: start: 20071107

REACTIONS (3)
  - ARRHYTHMIA [None]
  - BILE DUCT STONE [None]
  - PYELONEPHRITIS [None]
